FAERS Safety Report 5124835-5 (Version None)
Quarter: 2006Q4

REPORT INFORMATION
  Report Type: 
  Country: None (occurrence: None)
  Receive Date: 20061006
  Receipt Date: 20060926
  Transmission Date: 20070319
  Serious: Yes (Other)
  Sender: FDA-Public Use
  Company Number: 2006115244

PATIENT
  Age: 65 Year
  Sex: Female

DRUGS (4)
  1. ALDACTONE [Suspect]
     Indication: HYPERTENSION
     Dosage: (25 MG), ORAL
     Route: 048
     Dates: end: 20060120
  2. RAMIPRIL [Suspect]
     Indication: HYPERTENSION
     Dosage: ORAL
     Route: 048
     Dates: end: 20060120
  3. FUROSEMIDE [Concomitant]
  4. INSULIN (INSULIN) [Concomitant]

REACTIONS (6)
  - BLOOD CREATINE INCREASED [None]
  - DRUG INTERACTION [None]
  - DYSPNOEA [None]
  - HYPERKALAEMIA [None]
  - PARAESTHESIA [None]
  - SKIN ULCER [None]
